FAERS Safety Report 8155033-9 (Version None)
Quarter: 2012Q1

REPORT INFORMATION
  Report Type: 
  Country: None (occurrence: None)
  Receive Date: 20120221
  Receipt Date: 20120217
  Transmission Date: 20120608
  Serious: Yes (Death, Hospitalization)
  Sender: FDA-Public Use
  Company Number: US-B.I. PHARMACEUTICALS,INC./RIDGEFIELD-2012-BP-00252BP

PATIENT
  Sex: Male

DRUGS (9)
  1. TOPAMAX [Concomitant]
  2. OXYCODONE HCL [Concomitant]
  3. OXYCONTIN [Concomitant]
  4. ADVAIR DISKUS 100/50 [Concomitant]
  5. DEXAMETHASONE SODIUM PHOSPHATE [Concomitant]
  6. SPIRIVA [Suspect]
     Indication: CHRONIC OBSTRUCTIVE PULMONARY DISEASE
     Dosage: 18 MCG
     Route: 055
     Dates: start: 20010101
  7. SPIRIVA [Suspect]
     Indication: LUNG NEOPLASM MALIGNANT
  8. ZOFRAN [Concomitant]
  9. ALBUTEROL SULFATE [Concomitant]

REACTIONS (1)
  - LUNG CANCER METASTATIC [None]
